FAERS Safety Report 19442718 (Version 1)
Quarter: 2021Q2

REPORT INFORMATION
  Report Type: Spontaneous
  Country: JP (occurrence: JP)
  Receive Date: 20210621
  Receipt Date: 20210621
  Transmission Date: 20210717
  Serious: Yes (Other)
  Sender: FDA-Public Use
  Company Number: JP-PFIZER INC-2021667193

PATIENT
  Age: 78 Year
  Sex: Female

DRUGS (1)
  1. BOSUTINIB [Suspect]
     Active Substance: BOSUTINIB
     Indication: CHRONIC MYELOID LEUKAEMIA
     Dosage: UNK

REACTIONS (4)
  - Acute kidney injury [Unknown]
  - Pneumonia [Unknown]
  - Neuropathy peripheral [Unknown]
  - Drug intolerance [Unknown]

NARRATIVE: CASE EVENT DATE: 201803
